FAERS Safety Report 15332285 (Version 1)
Quarter: 2018Q3

REPORT INFORMATION
  Report Type: Spontaneous
  Country: BR (occurrence: BR)
  Receive Date: 20180829
  Receipt Date: 20180829
  Transmission Date: 20181010
  Serious: Yes (Other)
  Sender: FDA-Public Use
  Company Number: BR-SA-2018SA205714

PATIENT
  Age: 61 Year
  Sex: Female

DRUGS (4)
  1. METHOTREXATE. [Concomitant]
     Active Substance: METHOTREXATE
  2. ENBREL [Concomitant]
     Active Substance: ETANERCEPT
     Indication: RHEUMATOID ARTHRITIS
     Dosage: 50 MG, QW
     Dates: start: 201807
  3. AZULFIDINE [Concomitant]
     Active Substance: SULFASALAZINE
  4. ARAVA [Suspect]
     Active Substance: LEFLUNOMIDE
     Indication: RHEUMATOID ARTHRITIS
     Dosage: UNK

REACTIONS (19)
  - Palpitations [Unknown]
  - Skin lesion [Unknown]
  - Nausea [Recovering/Resolving]
  - Dizziness [Recovering/Resolving]
  - Product quality issue [Unknown]
  - Systemic lupus erythematosus [Not Recovered/Not Resolved]
  - Limb injury [Unknown]
  - Pyrexia [Not Recovered/Not Resolved]
  - Fatigue [Recovering/Resolving]
  - Blood viscosity increased [Unknown]
  - Hepatitis C [Unknown]
  - Hypotension [Recovering/Resolving]
  - Vomiting [Unknown]
  - Drug intolerance [Unknown]
  - Sarcoidosis [Unknown]
  - Condition aggravated [Unknown]
  - Oropharyngeal plaque [Unknown]
  - Osteoarthritis [Not Recovered/Not Resolved]
  - Influenza [Recovering/Resolving]

NARRATIVE: CASE EVENT DATE: 1998
